FAERS Safety Report 4437118-3 (Version None)
Quarter: 2004Q3

REPORT INFORMATION
  Report Type: 
  Country: None (occurrence: None)
  Receive Date: 20040830
  Receipt Date: 20040824
  Transmission Date: 20050211
  Serious: Yes (Other)
  Sender: FDA-Public Use
  Company Number: PHEH2004US09162

PATIENT
  Age: 74 Year
  Sex: Male

DRUGS (4)
  1. GLEEVEC [Suspect]
     Indication: CHRONIC MYELOID LEUKAEMIA
     Dosage: 400 MG, QD
     Route: 048
     Dates: start: 20010501
  2. CARDIZEM [Concomitant]
     Indication: ATRIAL FIBRILLATION
     Route: 048
     Dates: start: 20040401
  3. XANAX [Concomitant]
     Indication: ANXIETY
     Route: 048
  4. COUMADIN [Suspect]
     Indication: ATRIAL FIBRILLATION
     Route: 048
     Dates: start: 20040401

REACTIONS (6)
  - ATRIAL FIBRILLATION [None]
  - BONE PAIN [None]
  - FATIGUE [None]
  - MUSCLE CRAMP [None]
  - NIGHT SWEATS [None]
  - SKIN BURNING SENSATION [None]
